FAERS Safety Report 16714354 (Version 1)
Quarter: 2019Q3

REPORT INFORMATION
  Report Type: Spontaneous
  Country: US (occurrence: US)
  Receive Date: 20190819
  Receipt Date: 20190819
  Transmission Date: 20191004
  Serious: No
  Sender: FDA-Public Use
  Company Number: PHEH2019US033480

PATIENT

DRUGS (1)
  1. PIQRAY [Suspect]
     Active Substance: ALPELISIB
     Indication: PRODUCT USED FOR UNKNOWN INDICATION
     Route: 065

REACTIONS (8)
  - Protein total decreased [Unknown]
  - Weight decreased [Unknown]
  - Rash [Recovered/Resolved]
  - Bone pain [Unknown]
  - Decreased appetite [Unknown]
  - Asthenia [Unknown]
  - Stomatitis [Unknown]
  - Nausea [Unknown]
